FAERS Safety Report 9167357 (Version 1)
Quarter: 2013Q1

REPORT INFORMATION
  Report Type: Spontaneous
  Country: US (occurrence: None)
  Receive Date: 20130314
  Receipt Date: 20130314
  Transmission Date: 20140127
  Serious: Yes (Other)
  Sender: FDA-Public Use
  Company Number: None

PATIENT
  Sex: Male

DRUGS (1)
  1. CIMZIA 400 MG UCB PHARMA [Suspect]
     Indication: CROHN^S DISEASE
     Dosage: 400 MG EVERY 4 WEEKS SQ ROUTE
     Route: 058
     Dates: start: 201211, end: 20130301

REACTIONS (5)
  - Arthralgia [None]
  - Spinal pain [None]
  - Pain in extremity [None]
  - Gait disturbance [None]
  - Drug effect decreased [None]
